FAERS Safety Report 8333049-7 (Version None)
Quarter: 2012Q2

REPORT INFORMATION
  Report Type: 
  Country: None (occurrence: None)
  Receive Date: 20120503
  Receipt Date: 20120427
  Transmission Date: 20120825
  Serious: Yes (Other)
  Sender: FDA-Public Use
  Company Number: PHEH2012US008967

PATIENT
  Sex: Male

DRUGS (3)
  1. FOCALIN XR [Suspect]
     Dosage: 2.5MG IN THE MORNING AND 1.5 MG LATER IN THE DAY
  2. FOCALIN XR [Suspect]
     Dosage: 15 MG
     Dates: end: 20120203
  3. FOCALIN XR [Suspect]

REACTIONS (6)
  - HEADACHE [None]
  - DYSPNOEA [None]
  - DISORIENTATION [None]
  - ABDOMINAL PAIN UPPER [None]
  - AMNESIA [None]
  - VISUAL IMPAIRMENT [None]
